FAERS Safety Report 7151804-6 (Version None)
Quarter: 2010Q4

REPORT INFORMATION
  Report Type: 
  Country: None (occurrence: None)
  Receive Date: 20101210
  Receipt Date: 20101127
  Transmission Date: 20110411
  Serious: Yes (Other)
  Sender: FDA-Public Use
  Company Number: JP-AMGEN-JPNSP2010007625

PATIENT

DRUGS (1)
  1. ENBREL [Suspect]
     Route: 058

REACTIONS (2)
  - DIARRHOEA [None]
  - NEPHROLITHIASIS [None]
